FAERS Safety Report 7478974-4 (Version None)
Quarter: 2011Q2

REPORT INFORMATION
  Report Type: 
  Country: None (occurrence: None)
  Receive Date: 20110513
  Receipt Date: 20110505
  Transmission Date: 20111010
  Serious: Yes (Other)
  Sender: FDA-Public Use
  Company Number: PHHY2011US39009

PATIENT
  Age: 10 Year
  Sex: Male

DRUGS (1)
  1. FOCALIN XR [Suspect]
     Dosage: 20 MG, QD

REACTIONS (2)
  - PSYCHOMOTOR HYPERACTIVITY [None]
  - CARDIAC DISORDER [None]
